FAERS Safety Report 10146295 (Version 2)
Quarter: 2014Q2

REPORT INFORMATION
  Report Type: Spontaneous
  Country: US (occurrence: US)
  Receive Date: 20140501
  Receipt Date: 20140530
  Transmission Date: 20141212
  Serious: Yes (Other)
  Sender: FDA-Public Use
  Company Number: US-SA-2014SA053934

PATIENT
  Age: 69 Year
  Sex: Female
  Weight: 104.3 kg

DRUGS (15)
  1. LANTUS SOLOSTAR [Suspect]
     Indication: TYPE 2 DIABETES MELLITUS
     Dosage: DOSE 35AM , 27 PM
     Route: 065
     Dates: start: 2013, end: 20140415
  2. LANTUS SOLOSTAR [Suspect]
     Indication: TYPE 2 DIABETES MELLITUS
     Dosage: DOSE 35AM , 27 PM
     Route: 065
     Dates: start: 2013, end: 20140415
  3. LANTUS SOLOSTAR [Suspect]
     Indication: TYPE 2 DIABETES MELLITUS
     Route: 065
  4. LANTUS SOLOSTAR [Suspect]
     Indication: TYPE 2 DIABETES MELLITUS
     Route: 065
  5. SOLOSTAR [Concomitant]
     Indication: DEVICE THERAPY
     Dates: start: 2013
  6. METFORMIN [Concomitant]
  7. VITAMIN D [Concomitant]
  8. LISINOPRIL W/HYDROCHLOROTHIAZIDE [Concomitant]
  9. AMLODIPINE [Concomitant]
  10. SIMVASTATIN [Concomitant]
  11. WARFARIN [Concomitant]
  12. NORTRIPTYLINE [Concomitant]
  13. MAGNESIUM [Concomitant]
  14. CALTRATE [Concomitant]
  15. FISH OIL [Concomitant]

REACTIONS (3)
  - Diabetic foot [Not Recovered/Not Resolved]
  - Pain [Not Recovered/Not Resolved]
  - Drug administration error [Unknown]
